FAERS Safety Report 13680171 (Version 1)
Quarter: 2017Q2

REPORT INFORMATION
  Report Type: Report from Study
  Country: US (occurrence: US)
  Receive Date: 20170622
  Receipt Date: 20170622
  Transmission Date: 20170830
  Serious: Yes (Death, Hospitalization)
  Sender: FDA-Public Use
  Company Number: US-ACTELION-A-US2017-152693

PATIENT
  Age: 78 Year
  Sex: Male
  Weight: 83.9 kg

DRUGS (2)
  1. ELIQUIS [Concomitant]
     Active Substance: APIXABAN
  2. OPSUMIT [Suspect]
     Active Substance: MACITENTAN
     Indication: PULMONARY ARTERIAL HYPERTENSION
     Dosage: 10 MG, QD
     Route: 048

REACTIONS (9)
  - Fluid retention [Unknown]
  - Productive cough [Unknown]
  - Dyspnoea [Unknown]
  - Syncope [Unknown]
  - Blood potassium decreased [Unknown]
  - Asthenia [Unknown]
  - Dyspnoea exertional [Unknown]
  - Blood sodium decreased [Unknown]
  - Death [Fatal]

NARRATIVE: CASE EVENT DATE: 20170429
